FAERS Safety Report 13541169 (Version 1)
Quarter: 2017Q2

REPORT INFORMATION
  Report Type: Spontaneous
  Country: BR (occurrence: BR)
  Receive Date: 20170512
  Receipt Date: 20170512
  Transmission Date: 20170830
  Serious: Yes (Death)
  Sender: FDA-Public Use
  Company Number: PHHY2017BR069109

PATIENT
  Sex: Female
  Weight: 40 kg

DRUGS (1)
  1. FORASEQ [Suspect]
     Active Substance: BUDESONIDE\FORMOTEROL FUMARATE
     Indication: CHRONIC OBSTRUCTIVE PULMONARY DISEASE
     Dosage: 60 +60 CAPSULES, BID
     Route: 055
     Dates: start: 201607

REACTIONS (4)
  - Cardiac failure congestive [Fatal]
  - Hypertension [Fatal]
  - Hypertensive cardiomyopathy [Fatal]
  - Acute pulmonary oedema [Fatal]
